FAERS Safety Report 20779330 (Version 1)
Quarter: 2022Q2

REPORT INFORMATION
  Report Type: Spontaneous
  Country: US (occurrence: None)
  Receive Date: 20220503
  Receipt Date: 20220503
  Transmission Date: 20220721
  Serious: Yes (unspecified)
  Sender: FDA-Public Use
  Company Number: None

PATIENT
  Age: 84 Year
  Sex: Female
  Weight: 71.1 kg

DRUGS (1)
  1. RITUXAN [Suspect]
     Active Substance: RITUXIMAB
     Indication: Follicular lymphoma
     Dosage: OTHER FREQUENCY : WEEKLY X4, 2X/YR;?
     Route: 041
     Dates: start: 20220428

REACTIONS (3)
  - Throat irritation [None]
  - Ear pruritus [None]
  - Infusion related reaction [None]

NARRATIVE: CASE EVENT DATE: 20220428
